FAERS Safety Report 19046740 (Version 2)
Quarter: 2021Q2

REPORT INFORMATION
  Report Type: Spontaneous
  Country: US (occurrence: US)
  Receive Date: 20210322
  Receipt Date: 20210408
  Transmission Date: 20210717
  Serious: No
  Sender: FDA-Public Use
  Company Number: US-LUPIN PHARMACEUTICALS INC.-2021-03528

PATIENT
  Age: 67 Year
  Sex: Male
  Weight: 92.52 kg

DRUGS (1)
  1. AMLODIPINE AND BENAZEPRIL HYDROCHLORIDE CAPSULES USP, 5 MG/10 MG [Suspect]
     Active Substance: AMLODIPINE BESYLATE\BENAZEPRIL HYDROCHLORIDE
     Indication: HYPERTENSION
     Dosage: 1 DOSAGE FORM, QD
     Route: 048

REACTIONS (1)
  - Pruritus [Not Recovered/Not Resolved]
